FAERS Safety Report 12693571 (Version 24)
Quarter: 2021Q2

REPORT INFORMATION
  Report Type: Report from Study
  Country: CA (occurrence: CA)
  Receive Date: 20160829
  Receipt Date: 20210405
  Transmission Date: 20210716
  Serious: Yes (Other)
  Sender: FDA-Public Use
  Company Number: CA-PFIZER INC-2016399973

PATIENT
  Age: 52 Year
  Sex: Female

DRUGS (36)
  1. LOMOTIL [Concomitant]
     Active Substance: ATROPINE SULFATE\DIPHENOXYLATE HYDROCHLORIDE
     Dosage: UNK, QD
  2. CLONAZEPAM. [Concomitant]
     Active Substance: CLONAZEPAM
     Dosage: 2 MILLIGRAM
  3. ZOPICLONE [Concomitant]
     Active Substance: ZOPICLONE
     Dosage: 5 MILLIGRAM
  4. HYDROMORPHONE [HYDROMORPHONE HYDROCHLORIDE] [Concomitant]
     Active Substance: HYDROMORPHONE HYDROCHLORIDE
     Dosage: 1 MILLIGRAM
  5. FUROSEMIDE TEVA [Concomitant]
     Active Substance: FUROSEMIDE
     Dosage: 20 MILLIGRAM, QD
  6. ENTYVIO [Suspect]
     Active Substance: VEDOLIZUMAB
     Dosage: 300 MILLIGRAM, Q4WEEKS
     Route: 042
  7. VIOKACE [Concomitant]
     Active Substance: PANCRELIPASE AMYLASE\PANCRELIPASE LIPASE\PANCRELIPASE PROTEASE
     Dosage: UNK
  8. ENTYVIO [Suspect]
     Active Substance: VEDOLIZUMAB
     Dosage: 300 MILLIGRAM, Q4WEEKS
     Route: 042
     Dates: start: 20170621
  9. ENTYVIO [Suspect]
     Active Substance: VEDOLIZUMAB
     Dosage: 300 MILLIGRAM, Q4WEEKS
     Route: 042
  10. ENTYVIO [Suspect]
     Active Substance: VEDOLIZUMAB
     Dosage: 300 MILLIGRAM, Q4WEEKS
     Route: 042
  11. IMODIUM [Concomitant]
     Active Substance: LOPERAMIDE HYDROCHLORIDE
     Dosage: UNK, QD
  12. PMS GABAPENTIN [Concomitant]
     Dosage: UNK
  13. ENTYVIO [Suspect]
     Active Substance: VEDOLIZUMAB
     Dosage: 300 MILLIGRAM, Q4WEEKS
     Route: 042
  14. ENTYVIO [Suspect]
     Active Substance: VEDOLIZUMAB
     Dosage: 300 MILLIGRAM, Q4WEEKS
     Route: 042
  15. PREVACID [Concomitant]
     Active Substance: LANSOPRAZOLE
     Indication: DYSPEPSIA
     Dosage: UNK
  16. SYNTHROID [Concomitant]
     Active Substance: LEVOTHYROXINE SODIUM
     Dosage: UNK
  17. ENTYVIO [Suspect]
     Active Substance: VEDOLIZUMAB
     Dosage: 300 MILLIGRAM, Q4WEEKS
     Route: 042
  18. ENTYVIO [Suspect]
     Active Substance: VEDOLIZUMAB
     Dosage: 300 MILLIGRAM, Q4WEEKS
     Route: 042
  19. CITALOPRAM [CITALOPRAM HYDROBROMIDE] [Concomitant]
     Active Substance: CITALOPRAM HYDROBROMIDE
     Dosage: UNK, QD
  20. FENTANYL TEVA [Concomitant]
     Active Substance: FENTANYL
     Dosage: 50 MILLIGRAM
  21. ORACORT [TRIAMCINOLONE ACETONIDE] [Concomitant]
     Active Substance: TRIAMCINOLONE ACETONIDE
     Dosage: UNK
  22. STIEVA?A [Concomitant]
     Active Substance: TRETINOIN
     Dosage: UNK
  23. ENTYVIO [Suspect]
     Active Substance: VEDOLIZUMAB
     Dosage: 300 MILLIGRAM, Q4WEEKS
     Route: 042
  24. ENTYVIO [Suspect]
     Active Substance: VEDOLIZUMAB
     Dosage: 300 MILLIGRAM, Q4WEEKS
     Route: 042
  25. ENTYVIO [Suspect]
     Active Substance: VEDOLIZUMAB
     Dosage: 300 MILLIGRAM, Q4WEEKS
     Route: 042
  26. BENZAMYCIN [Concomitant]
     Active Substance: BENZOYL PEROXIDE\ERYTHROMYCIN
     Dosage: UNK
  27. NYSTATIN. [Concomitant]
     Active Substance: NYSTATIN
     Dosage: UNK
  28. TECTA [Suspect]
     Active Substance: PANTOPRAZOLE MAGNESIUM
     Indication: DYSPEPSIA
     Dosage: UNK, TID
     Route: 065
  29. ENTYVIO [Suspect]
     Active Substance: VEDOLIZUMAB
     Indication: CROHN^S DISEASE
     Dosage: 300 MILLIGRAM
     Route: 042
     Dates: start: 20160829
  30. ENTYVIO [Suspect]
     Active Substance: VEDOLIZUMAB
     Dosage: 300 MILLIGRAM, Q4WEEKS
     Route: 042
  31. CYCLOBENZAPRINE. [Concomitant]
     Active Substance: CYCLOBENZAPRINE
     Dosage: 10 MILLIGRAM
  32. PROGESTERONE. [Concomitant]
     Active Substance: PROGESTERONE
     Dosage: UNK
  33. SPIRONOLACTONE TEVA [Concomitant]
     Active Substance: SPIRONOLACTONE
     Dosage: 100 MILLIGRAM, QD
  34. LUPRON DEPOT?PED [Concomitant]
     Active Substance: LEUPROLIDE ACETATE
     Dosage: UNK
  35. DICLECTIN [Concomitant]
     Active Substance: DOXYLAMINE SUCCINATE\PYRIDOXINE HYDROCHLORIDE
     Indication: NAUSEA
     Dosage: UNK
  36. VALACYCLOVIR [VALACICLOVIR HYDROCHLORIDE] [Concomitant]
     Active Substance: VALACYCLOVIR HYDROCHLORIDE
     Dosage: UNK

REACTIONS (16)
  - Fluid intake reduced [Unknown]
  - Hypoaesthesia [Unknown]
  - Crohn^s disease [Not Recovered/Not Resolved]
  - Abdominal pain upper [Unknown]
  - Oral candidiasis [Not Recovered/Not Resolved]
  - Infusion site extravasation [Unknown]
  - Paraesthesia [Unknown]
  - Device issue [Unknown]
  - Malnutrition [Unknown]
  - Gastrointestinal stoma output increased [Unknown]
  - Weight decreased [Unknown]
  - Back pain [Unknown]
  - Sluggishness [Unknown]
  - Blood pressure decreased [Unknown]
  - Feeding disorder [Unknown]
  - Asthenia [Unknown]

NARRATIVE: CASE EVENT DATE: 20161011
